FAERS Safety Report 4727755-0 (Version None)
Quarter: 2005Q3

REPORT INFORMATION
  Report Type: 
  Country: None (occurrence: None)
  Receive Date: 20050727
  Receipt Date: 20050527
  Transmission Date: 20060218
  Serious: Yes (Congenital Anomaly)
  Sender: FDA-Public Use
  Company Number: 2005FR-00150

PATIENT
  Sex: Male

DRUGS (2)
  1. FLUOXETINE [Suspect]
     Indication: BULIMIA NERVOSA
     Dosage: 60 MG, TRANSPLACEN
     Route: 064
  2. FLUOXETINE [Suspect]
     Indication: DEPRESSION
     Dosage: 60 MG, TRANSPLACEN
     Route: 064

REACTIONS (3)
  - CONGENITAL CYSTIC LUNG [None]
  - DRUG EXPOSURE DURING PREGNANCY [None]
  - PULMONARY MALFORMATION [None]
